FAERS Safety Report 7502534-X (Version None)
Quarter: 2011Q2

REPORT INFORMATION
  Report Type: 
  Country: None (occurrence: None)
  Receive Date: 20110525
  Receipt Date: 20100913
  Transmission Date: 20111010
  Serious: No
  Sender: FDA-Public Use
  Company Number: US-MYLANLABS-2010S1016629

PATIENT
  Age: 68 Year
  Sex: Female

DRUGS (3)
  1. METFORMIN HYDROCHLORIDE [Concomitant]
     Indication: DIABETES MELLITUS
  2. METHYLDOPA [Suspect]
     Indication: BLOOD PRESSURE INCREASED
     Route: 048
  3. AMLODIPINE BESYLATE [Suspect]
     Indication: BLOOD PRESSURE INCREASED
     Route: 048

REACTIONS (3)
  - HYPERHIDROSIS [None]
  - DIARRHOEA [None]
  - ABDOMINAL PAIN [None]
